FAERS Safety Report 7610630-1 (Version None)
Quarter: 2011Q3

REPORT INFORMATION
  Report Type: 
  Country: None (occurrence: None)
  Receive Date: 20110715
  Receipt Date: 20110617
  Transmission Date: 20111222
  Serious: Yes (Hospitalization)
  Sender: FDA-Public Use
  Company Number: US-BAYER-201041454NA

PATIENT
  Sex: Female

DRUGS (19)
  1. METFORMIN HCL [Concomitant]
     Dosage: 500 MG, QD
     Route: 048
     Dates: start: 20061203
  2. AVANDIA [Concomitant]
     Dosage: 4 MG, QD
     Route: 048
     Dates: start: 20061203
  3. VITAMIN TAB [Concomitant]
     Dosage: UNK UNK, QD
     Route: 048
     Dates: start: 20061203
  4. DROSPIRENONE AND ETHINYL ESTRADIOL [Suspect]
     Indication: ACNE
     Dosage: UNK
     Dates: start: 20050101, end: 20060101
  5. TOPROL-XL [Concomitant]
     Dosage: 100 MG, QD
     Route: 048
     Dates: start: 20061203
  6. TORADOL [Concomitant]
     Dosage: UNK
     Dates: start: 20061201
  7. IBUPROFEN [Concomitant]
     Dosage: 800 MG, TID
     Dates: start: 20061201
  8. VICODIN [Concomitant]
     Indication: PAIN
     Dosage: UNK
     Dates: start: 20061101
  9. LISINOPRIL [Concomitant]
     Dosage: 2.5 MG, QD
     Route: 048
     Dates: start: 20061203
  10. PROTONIX [Concomitant]
     Dosage: 40 MG, QD
     Dates: start: 20061203
  11. ACIDOPHILUS [Concomitant]
     Dosage: 16 MG, QD
     Dates: start: 20061203
  12. SPIRONOLACTONE [Concomitant]
     Dosage: 25 MG, QD
     Route: 048
     Dates: start: 20061203
  13. MAGNESIUM OXIDE [Concomitant]
     Dosage: 400 MG, BID
     Route: 048
     Dates: start: 20061203
  14. ALPRAZOLAM [Concomitant]
     Dosage: 0.5 MG, HS
     Route: 048
     Dates: start: 20061203
  15. CRESTOR [Concomitant]
     Dosage: 5 MG, QD
     Dates: start: 20061203
  16. KEFLEX [Concomitant]
     Dosage: UNK UNK, QD
     Route: 048
     Dates: start: 20061101
  17. INSULIN [Concomitant]
     Dosage: UNK
     Dates: start: 20061201
  18. CITROPROLAM [Concomitant]
     Dosage: 20 MG, HS
     Route: 048
     Dates: start: 20061203
  19. ASPIRIN [Concomitant]
     Dosage: 325 MG, QD
     Route: 048
     Dates: start: 20061203

REACTIONS (12)
  - CHRONIC SINUSITIS [None]
  - PLEURISY [None]
  - HYPERCALCIURIA [None]
  - ARTHRALGIA [None]
  - NEPHROLITHIASIS [None]
  - DEEP VEIN THROMBOSIS [None]
  - DYSLIPIDAEMIA [None]
  - GOITRE [None]
  - HYPERTENSION [None]
  - SEROMA [None]
  - HYPERGLYCAEMIA [None]
  - THYROID NEOPLASM [None]
